FAERS Safety Report 23725878 (Version 2)
Quarter: 2024Q2

REPORT INFORMATION
  Report Type: Report from Study
  Country: CA (occurrence: CA)
  Receive Date: 20240410
  Receipt Date: 20240416
  Transmission Date: 20240716
  Serious: Yes (Other)
  Sender: FDA-Public Use
  Company Number: CA-JAMP PHARMA CORPORATION-2024-JAM-CA-00086

PATIENT
  Age: 52 Year
  Sex: Male

DRUGS (2)
  1. SIMLANDI [Suspect]
     Active Substance: ADALIMUMAB-RYVK
     Indication: Colitis ulcerative
     Dosage: 40 MG, EVERY WEEK
     Route: 058
     Dates: start: 20240223
  2. SIMLANDI [Suspect]
     Active Substance: ADALIMUMAB-RYVK
     Indication: Colitis ulcerative
     Dosage: 40 MG, EVERY OTHER WEEK
     Route: 058
     Dates: start: 20231006, end: 20240223

REACTIONS (8)
  - Pulmonary congestion [Unknown]
  - Haematochezia [Recovered/Resolved]
  - Pneumonia [Unknown]
  - Anaemia [Unknown]
  - Cough [Unknown]
  - Chills [Unknown]
  - Product storage error [Unknown]
  - Inappropriate schedule of product administration [Unknown]
